FAERS Safety Report 10185170 (Version 1)
Quarter: 2014Q2

REPORT INFORMATION
  Report Type: Spontaneous
  Country: FR (occurrence: FR)
  Receive Date: 20140521
  Receipt Date: 20140521
  Transmission Date: 20141212
  Serious: Yes (Hospitalization)
  Sender: FDA-Public Use
  Company Number: PHHY2014FR059216

PATIENT
  Age: 73 Year
  Sex: Female

DRUGS (9)
  1. ACLASTA [Suspect]
     Indication: OSTEOPOROTIC FRACTURE
     Dosage: 5 MG, EVERY 6 MONTHS
     Route: 042
     Dates: start: 201101
  2. ACLASTA [Suspect]
     Dosage: 5 MG, EVERY 6 MONTHS
     Route: 042
     Dates: start: 20140128, end: 20140128
  3. LAMALINE [Concomitant]
     Dosage: UNK UKN, UNK
     Route: 048
  4. NEBILOX [Concomitant]
     Dosage: 5 MG, QD
     Route: 048
  5. TAHOR [Concomitant]
     Dosage: 20 MG, QD
     Route: 048
  6. ZOLPIDEM [Concomitant]
     Dosage: 10 MG, QD
     Route: 048
  7. MIANSERINE [Concomitant]
     Dosage: 10 KIU, QD
     Route: 048
  8. LEVOTHYROX [Concomitant]
     Dosage: 25 UG, QD
     Route: 048
  9. UVEDOSE [Concomitant]
     Dosage: 100000 IU, EVERY 2 MONTH
     Route: 048

REACTIONS (1)
  - Osteonecrosis of jaw [Recovered/Resolved with Sequelae]
